FAERS Safety Report 13890139 (Version 1)
Quarter: 2017Q3

REPORT INFORMATION
  Report Type: Spontaneous
  Country: DE (occurrence: DE)
  Receive Date: 20170822
  Receipt Date: 20170822
  Transmission Date: 20171127
  Serious: Yes (Congenital Anomaly)
  Sender: FDA-Public Use
  Company Number: DE-ASTRAZENECA-2017SE85366

PATIENT
  Age: 1 Day
  Sex: Female
  Weight: 3.5 kg

DRUGS (1)
  1. SEROQUEL [Suspect]
     Active Substance: QUETIAPINE FUMARATE
     Indication: BIPOLAR DISORDER
     Route: 064
     Dates: start: 20151124, end: 20160821

REACTIONS (4)
  - Congenital small intestinal atresia [Recovered/Resolved with Sequelae]
  - Congenital absence of bile ducts [Not Recovered/Not Resolved]
  - Spleen malformation [Not Recovered/Not Resolved]
  - Vascular malformation [Not Recovered/Not Resolved]

NARRATIVE: CASE EVENT DATE: 20160821
